FAERS Safety Report 8996627 (Version 4)
Quarter: 2013Q2

REPORT INFORMATION
  Report Type: Report from Study
  Country: JP (occurrence: JP)
  Receive Date: 20130104
  Receipt Date: 20130404
  Transmission Date: 20140414
  Serious: Yes (Other)
  Sender: FDA-Public Use
  Company Number: JP-PFIZER INC-2012332403

PATIENT
  Age: 63 Year
  Sex: Male
  Weight: 65 kg

DRUGS (13)
  1. FOSPHENYTOIN SODIUM [Suspect]
     Indication: PROPHYLAXIS
     Dosage: 15 MG/KG AT 0.5 MG/MIN IN 0.9% PHYSIOLOGICAL SALINE(DILUTION RATIO: 1:10)
     Dates: start: 20121212
  2. FOSPHENYTOIN SODIUM [Suspect]
     Dosage: 5 MG/KG AT 0.3 MG/MIN IN 0.9% PHYSIOLOGICAL SALINE(DILUTION RATIO: 1:30)
     Dates: start: 20121213
  3. FOSPHENYTOIN SODIUM [Suspect]
     Dosage: 5 MG/KG AT 0.3 MG/MIN IN 0.9% PHYSIOLOGICAL SALINE(DILUTION RATIO: 1:30)
     Dates: start: 20121214
  4. GLYCEOL [Concomitant]
     Indication: PROPHYLAXIS
     Dosage: 400 ML, UNK
     Route: 042
     Dates: start: 20121224
  5. DECADRON [Concomitant]
     Indication: PROPHYLAXIS
     Dosage: 3.3 MG, UNK
     Route: 042
     Dates: start: 20121224
  6. RASENAZOLIN [Concomitant]
     Indication: PROPHYLAXIS
     Dosage: 2 G, UNK
     Route: 042
     Dates: start: 20121212, end: 20121213
  7. NICARDIPINE [Concomitant]
     Indication: HYPERTENSION
     Dosage: 90 MG, UNK
     Route: 042
     Dates: start: 20121213, end: 20121214
  8. RADICUT [Concomitant]
     Indication: CEREBRAL INFARCTION
     Dosage: 60 MG, UNK
     Route: 042
     Dates: start: 20121213, end: 20121224
  9. HUMULIN R [Concomitant]
     Indication: DIABETES MELLITUS
     Dosage: 121 U, UNK
     Route: 061
     Dates: start: 20121212
  10. KEPPRA [Concomitant]
     Indication: EPILEPSY
     Dosage: 1000 MG, UNK
     Route: 048
     Dates: start: 20121213
  11. EXCEGRAN [Concomitant]
     Indication: EPILEPSY
     Dosage: 200 MG, UNK
     Route: 048
     Dates: start: 20121217
  12. AMLODIN [Concomitant]
     Indication: EPILEPSY
     Dosage: 5 MG, UNK
     Route: 048
     Dates: start: 20121214
  13. AMLODIN [Concomitant]
     Indication: HYPERTENSION

REACTIONS (3)
  - Cerebral infarction [Recovered/Resolved]
  - Hemiplegia [Unknown]
  - Drug ineffective [Unknown]
